FAERS Safety Report 16613888 (Version 2)
Quarter: 2019Q4

REPORT INFORMATION
  Report Type: Spontaneous
  Country: US (occurrence: US)
  Receive Date: 20190723
  Receipt Date: 20191030
  Transmission Date: 20200122
  Serious: Yes (Other)
  Sender: FDA-Public Use
  Company Number: US-009507513-1907USA011301

PATIENT
  Age: 80 Year
  Sex: Female

DRUGS (2)
  1. KEYTRUDA [Suspect]
     Active Substance: PEMBROLIZUMAB
     Indication: MALIGNANT MELANOMA
     Dosage: 200 MILLIGRAM, EVERY 3 WEEKS
     Route: 042
  2. KEYTRUDA [Suspect]
     Active Substance: PEMBROLIZUMAB
     Dosage: 200 MILLIGRAM, EVERY 3 WEEKS
     Route: 042

REACTIONS (2)
  - Headache [Recovered/Resolved]
  - Hemiplegia [Recovered/Resolved]
